FAERS Safety Report 6111400-6 (Version None)
Quarter: 2009Q1

REPORT INFORMATION
  Report Type: 
  Country: None (occurrence: None)
  Receive Date: 20090310
  Receipt Date: 20090310
  Transmission Date: 20090719
  Serious: Yes (Death)
  Sender: FDA-Public Use
  Company Number: None

PATIENT
  Age: 25 Year
  Sex: Female
  Weight: 54.4316 kg

DRUGS (2)
  1. IMIPRAMINE HCL [Suspect]
     Indication: ANXIETY
  2. IMIPRAMINE HCL [Suspect]
     Indication: DIVORCED

REACTIONS (9)
  - ABNORMAL BEHAVIOUR [None]
  - AKATHISIA [None]
  - ASTHENIA [None]
  - COMPLETED SUICIDE [None]
  - DYSPHAGIA [None]
  - DYSPNOEA [None]
  - DYSSTASIA [None]
  - FEELING ABNORMAL [None]
  - GUN SHOT WOUND [None]
